FAERS Safety Report 14287694 (Version 1)
Quarter: 2017Q4

REPORT INFORMATION
  Report Type: Report from Study
  Country: None (occurrence: BR)
  Receive Date: 20171215
  Receipt Date: 20171215
  Transmission Date: 20180321
  Serious: Yes (Other)
  Sender: FDA-Public Use
  Company Number: BR-ABBVIE-17K-020-2188360-00

PATIENT
  Sex: Female
  Weight: 75 kg

DRUGS (5)
  1. TANDRILAX [Concomitant]
     Active Substance: ACETAMINOPHEN\CAFFEINE\CARISOPRODOL\DICLOFENAC SODIUM
     Indication: PRODUCT USED FOR UNKNOWN INDICATION
  2. CYCLOBENZAPRINE. [Concomitant]
     Active Substance: CYCLOBENZAPRINE
     Indication: PRODUCT USED FOR UNKNOWN INDICATION
  3. HUMIRA [Suspect]
     Active Substance: ADALIMUMAB
     Indication: ANKYLOSING SPONDYLITIS
     Route: 058
  4. HUMIRA [Suspect]
     Active Substance: ADALIMUMAB
     Route: 058
     Dates: start: 20170202
  5. VENLIFT OD [Concomitant]
     Active Substance: VENLAFAXINE HYDROCHLORIDE
     Indication: DEPRESSION

REACTIONS (11)
  - Spinal cord compression [Not Recovered/Not Resolved]
  - Aortic valve incompetence [Unknown]
  - Mitral valve prolapse [Unknown]
  - Swelling [Not Recovered/Not Resolved]
  - Bicuspid aortic valve [Unknown]
  - Weight increased [Not Recovered/Not Resolved]
  - Vision blurred [Not Recovered/Not Resolved]
  - Hyperphagia [Unknown]
  - Hepatic steatosis [Not Recovered/Not Resolved]
  - Hypertension [Recovering/Resolving]
  - Hyperhidrosis [Not Recovered/Not Resolved]

NARRATIVE: CASE EVENT DATE: 2012
